FAERS Safety Report 16677537 (Version 1)
Quarter: 2019Q3

REPORT INFORMATION
  Report Type: Spontaneous
  Country: FR (occurrence: FR)
  Receive Date: 20190807
  Receipt Date: 20190807
  Transmission Date: 20191004
  Serious: Yes (Hospitalization)
  Sender: FDA-Public Use
  Company Number: FR-PFIZER INC-2019331632

PATIENT
  Age: 39 Year
  Sex: Male
  Weight: 100 kg

DRUGS (4)
  1. TEGRETOL [Concomitant]
     Active Substance: CARBAMAZEPINE
     Dosage: UNK
     Route: 048
  2. OXALIPLATIN. [Suspect]
     Active Substance: OXALIPLATIN
     Indication: ANAL CANCER
     Dosage: 6TH TREATMENT
     Route: 042
     Dates: start: 20190520, end: 20190520
  3. FLUOROURACIL. [Suspect]
     Active Substance: FLUOROURACIL
     Indication: ANAL CANCER
     Dosage: 6TH TREATMENT
     Route: 042
     Dates: start: 20190520, end: 20190520
  4. IRINOTECAN HCL [Suspect]
     Active Substance: IRINOTECAN HYDROCHLORIDE
     Indication: ANAL CANCER
     Dosage: 6TH TREATMENT
     Route: 042
     Dates: start: 20190520, end: 20190520

REACTIONS (1)
  - Lung disorder [Not Recovered/Not Resolved]

NARRATIVE: CASE EVENT DATE: 20190522
